FAERS Safety Report 4291519-5 (Version None)
Quarter: 2004Q1

REPORT INFORMATION
  Report Type: 
  Country: None (occurrence: None)
  Receive Date: 20040126
  Receipt Date: 20031030
  Transmission Date: 20041129
  Serious: No
  Sender: FDA-Public Use
  Company Number: USA031051244

PATIENT
  Age: 65 Year
  Sex: Female

DRUGS (5)
  1. FORTEO [Suspect]
     Indication: OSTEOPOROSIS
     Dosage: 20 UG/DAY
     Dates: start: 20031023
  2. ATIVAN [Concomitant]
  3. FLEXERIL [Concomitant]
  4. LEXAPRO [Concomitant]
  5. TAMOXIFEN [Concomitant]

REACTIONS (1)
  - BACK PAIN [None]
